FAERS Safety Report 8104840-7 (Version None)
Quarter: 2012Q1

REPORT INFORMATION
  Report Type: 
  Country: None (occurrence: None)
  Receive Date: 20120130
  Receipt Date: 20120124
  Transmission Date: 20120608
  Serious: Yes (Hospitalization)
  Sender: FDA-Public Use
  Company Number: NL-ROCHE-1033500

PATIENT
  Sex: Male
  Weight: 105 kg

DRUGS (5)
  1. NIFEDIPINE [Concomitant]
     Dates: start: 20120103
  2. LOMUSTINE [Suspect]
     Indication: BRAIN NEOPLASM MALIGNANT
     Dosage: DATE OF LAST DOSE: 16/JAN/2012
     Route: 048
     Dates: start: 20111121
  3. PANTOPRAZOLE [Concomitant]
     Dates: start: 20110909
  4. AVASTIN [Suspect]
     Indication: BRAIN NEOPLASM MALIGNANT
     Dosage: DATE OF LAST DOSE: 16/JAN/2012
     Route: 042
     Dates: start: 20111121
  5. DEXAMETHASONE [Concomitant]
     Route: 048
     Dates: start: 20111021

REACTIONS (1)
  - CONVULSION [None]
